FAERS Safety Report 9716869 (Version 2)
Quarter: 2013Q4

REPORT INFORMATION
  Report Type: Report from Study
  Country: US (occurrence: US)
  Receive Date: 20131127
  Receipt Date: 20131127
  Transmission Date: 20140711
  Serious: Yes (Death, Hospitalization, Other)
  Sender: FDA-Public Use
  Company Number: US-TEVA-427229USA

PATIENT
  Sex: Female

DRUGS (7)
  1. CLOZAPINE [Suspect]
     Indication: SCHIZOPHRENIA, PARANOID TYPE
     Dosage: 100 MILLIGRAM DAILY; RESTART AT 12.5 MG BID, INCREASING TO DOSE OF 100 MG Q AM AND 200 MG HS
     Route: 048
     Dates: start: 20130301
  2. CLOZAPINE [Suspect]
     Dosage: 200 MILLIGRAM DAILY;
     Route: 048
  3. ATENOLOL [Concomitant]
     Dosage: 200 MILLIGRAM DAILY;
     Route: 048
  4. LEVEMIR [Concomitant]
     Dosage: Q DAY FOR BS 264-307
  5. METFORMIN [Concomitant]
     Dosage: 2000 MILLIGRAM DAILY;
  6. PANTOPRAZOLE [Concomitant]
     Dosage: 40 MILLIGRAM DAILY;
  7. BETAMETHASONE [Concomitant]
     Dosage: TO RASH ON LEGS
     Route: 061

REACTIONS (5)
  - Pulmonary embolism [Fatal]
  - Respiratory arrest [Fatal]
  - Cardiac arrest [Fatal]
  - Diabetes mellitus [Fatal]
  - Hypertension [Fatal]
